FAERS Safety Report 9366304 (Version 1)
Quarter: 2013Q2

REPORT INFORMATION
  Report Type: Spontaneous
  Country: GB (occurrence: GB)
  Receive Date: 20130625
  Receipt Date: 20130625
  Transmission Date: 20140414
  Serious: Yes (Hospitalization)
  Sender: FDA-Public Use
  Company Number: GB-JNJFOC-20130608948

PATIENT
  Age: 55 Year
  Sex: Male

DRUGS (6)
  1. ABCIXIMAB [Suspect]
     Indication: MYOCARDIAL INFARCTION
     Dosage: AS INTRAVENOUS BOLUS
     Route: 042
  2. ABCIXIMAB [Suspect]
     Indication: MYOCARDIAL INFARCTION
     Dosage: AS INTRAVENOUS INFUSION
     Route: 042
  3. CLOPIDOGREL [Suspect]
     Indication: MYOCARDIAL INFARCTION
     Route: 065
  4. ASPIRIN [Suspect]
     Indication: MYOCARDIAL INFARCTION
     Route: 065
  5. HEPARIN [Suspect]
     Indication: MYOCARDIAL INFARCTION
     Route: 042
  6. HEPARIN [Suspect]
     Indication: MYOCARDIAL INFARCTION
     Route: 042

REACTIONS (3)
  - Atrioventricular block complete [Recovered/Resolved]
  - Ventricular tachycardia [Recovered/Resolved]
  - Interventricular septum rupture [Recovered/Resolved]
